FAERS Safety Report 5265439-3 (Version None)
Quarter: 2007Q1

REPORT INFORMATION
  Report Type: 
  Country: None (occurrence: None)
  Receive Date: 20070314
  Receipt Date: 20070302
  Transmission Date: 20070707
  Serious: Yes (Hospitalization, Other)
  Sender: FDA-Public Use
  Company Number: US-PFIZER INC-2007016783

PATIENT
  Sex: Female
  Weight: 53.5 kg

DRUGS (1)
  1. LYRICA [Suspect]
     Indication: NEURALGIA
     Dates: start: 20060101, end: 20070222

REACTIONS (2)
  - DEPRESSION [None]
  - HYPOGLYCAEMIC SEIZURE [None]
